FAERS Safety Report 25154904 (Version 1)
Quarter: 2025Q2

REPORT INFORMATION
  Report Type: Spontaneous
  Country: DE (occurrence: DE)
  Receive Date: 20250403
  Receipt Date: 20250403
  Transmission Date: 20250716
  Serious: Yes (Other)
  Sender: MYLAN
  Company Number: DE-MYLANLABS-2025M1028645

PATIENT
  Age: 70 Year
  Sex: Female

DRUGS (4)
  1. PREGABALIN [Suspect]
     Active Substance: PREGABALIN
     Indication: Multiple sclerosis
     Dosage: 325 MILLIGRAM, QD
  2. PREGABALIN [Suspect]
     Active Substance: PREGABALIN
     Dosage: 325 MILLIGRAM, QD
     Route: 065
  3. PREGABALIN [Suspect]
     Active Substance: PREGABALIN
     Dosage: 325 MILLIGRAM, QD
     Route: 065
  4. PREGABALIN [Suspect]
     Active Substance: PREGABALIN
     Dosage: 325 MILLIGRAM, QD

REACTIONS (3)
  - Haematoma [Recovered/Resolved]
  - Epistaxis [Recovered/Resolved]
  - Off label use [Unknown]
